FAERS Safety Report 12768537 (Version 1)
Quarter: 2016Q3

REPORT INFORMATION
  Report Type: Spontaneous
  Country: US (occurrence: US)
  Receive Date: 20160921
  Receipt Date: 20160921
  Transmission Date: 20161109
  Serious: Yes (Other)
  Sender: FDA-Public Use
  Company Number: US-TAIHO ONCOLOGY INC-EU-2016-01104

PATIENT
  Sex: Female

DRUGS (1)
  1. LONSURF [Suspect]
     Active Substance: TIPIRACIL HYDROCHLORIDE\TRIFLURIDINE
     Indication: COLORECTAL CANCER
     Route: 048
     Dates: start: 20160404, end: 2016

REACTIONS (6)
  - Vomiting [Unknown]
  - Fall [Unknown]
  - Back disorder [Unknown]
  - Back pain [Unknown]
  - Hip fracture [Unknown]
  - Nausea [Unknown]

NARRATIVE: CASE EVENT DATE: 2016
